FAERS Safety Report 8916568 (Version 2)
Quarter: 2015Q4

REPORT INFORMATION
  Report Type: Spontaneous
  Country: US (occurrence: US)
  Receive Date: 20121120
  Receipt Date: 20151124
  Transmission Date: 20160305
  Serious: No
  Sender: FDA-Public Use
  Company Number: US-VERTEX PHARMACEUTICAL INC.-AE-2012-005004

PATIENT
  Age: 52 Year
  Sex: Female
  Weight: 57 kg

DRUGS (4)
  1. INCIVEK [Suspect]
     Active Substance: TELAPREVIR
     Indication: HEPATITIS C
     Dosage: 750 MG, TID
     Route: 048
     Dates: start: 20120331, end: 201304
  2. PEGYLATED INTERFERON NOS [Suspect]
     Active Substance: PEGINTERFERON ALFA-2A OR PEGINTERFERON ALFA-2B OR PEGINTERFERON BETA-1A OR PEGINTERFERON LAMBDA-1A
     Indication: HEPATITIS C
     Dosage: 180 ?G, UNK
     Route: 058
     Dates: start: 20120331
  3. RIBAVIRIN. [Suspect]
     Active Substance: RIBAVIRIN
     Indication: HEPATITIS C
     Dosage: 600 MG AM, 400 MG PM
     Route: 048
     Dates: start: 20120331
  4. ESTROGEN [Concomitant]
     Active Substance: ESTRONE\SUS SCROFA OVARY
     Indication: MENOPAUSE

REACTIONS (7)
  - Diarrhoea [Not Recovered/Not Resolved]
  - Migraine [Not Recovered/Not Resolved]
  - Fatigue [Not Recovered/Not Resolved]
  - Skin irritation [Not Recovered/Not Resolved]
  - Pruritus [Recovered/Resolved]
  - Parosmia [Not Recovered/Not Resolved]
  - Rash generalised [Recovered/Resolved]

NARRATIVE: CASE EVENT DATE: 20120402
